FAERS Safety Report 9924073 (Version 2)
Quarter: 2015Q4

REPORT INFORMATION
  Report Type: Report from Study
  Country: US (occurrence: US)
  Receive Date: 20140225
  Receipt Date: 20151118
  Transmission Date: 20160305
  Serious: Yes (Other)
  Sender: FDA-Public Use
  Company Number: US-ROCHE-1338314

PATIENT
  Age: 63 Year
  Sex: Male

DRUGS (11)
  1. AVASTIN [Suspect]
     Active Substance: BEVACIZUMAB
     Indication: PRODUCT USED FOR UNKNOWN INDICATION
     Route: 047
  2. HCTZ [Concomitant]
     Active Substance: HYDROCHLOROTHIAZIDE
  3. AMIODARONE [Concomitant]
     Active Substance: AMIODARONE
     Route: 065
  4. LUCENTIS [Suspect]
     Active Substance: RANIBIZUMAB
     Indication: RETINAL OEDEMA
  5. SPIRONOLACTONE. [Concomitant]
     Active Substance: SPIRONOLACTONE
     Route: 065
  6. LUCENTIS [Suspect]
     Active Substance: RANIBIZUMAB
     Indication: VENOUS OCCLUSION
     Dosage: LEFT EYE
     Route: 050
  7. PACERONE [Concomitant]
     Active Substance: AMIODARONE HYDROCHLORIDE
  8. LUCENTIS [Suspect]
     Active Substance: RANIBIZUMAB
     Indication: RETINAL VEIN OCCLUSION
  9. SYSTANE (HYPROMELLOSE 2910 (4000 MPA.S)) [Concomitant]
     Active Substance: HYPROMELLOSE 2910 (4000 MPA.S)
     Route: 065
  10. LISINOPRIL. [Concomitant]
     Active Substance: LISINOPRIL
  11. WARFARIN [Concomitant]
     Active Substance: WARFARIN

REACTIONS (17)
  - Hypertension [Unknown]
  - Eye irritation [Unknown]
  - Atrial fibrillation [Unknown]
  - Eye pain [Unknown]
  - Vision blurred [Unknown]
  - Cardiomegaly [Unknown]
  - Dry eye [Unknown]
  - Pneumonia [Unknown]
  - Visual acuity reduced [Unknown]
  - Dyspnoea [Unknown]
  - Vitreous floaters [Unknown]
  - Headache [Unknown]
  - Heart rate irregular [Unknown]
  - Asthma [Unknown]
  - Vitreous detachment [Unknown]
  - Eye swelling [Unknown]
  - Off label use [Unknown]

NARRATIVE: CASE EVENT DATE: 20110524
